FAERS Safety Report 6136807-2 (Version None)
Quarter: 2009Q1

REPORT INFORMATION
  Report Type: 
  Country: None (occurrence: None)
  Receive Date: 20090330
  Receipt Date: 20090325
  Transmission Date: 20090719
  Serious: Yes (Hospitalization)
  Sender: FDA-Public Use
  Company Number: US-GILEAD-2009-0021107

PATIENT
  Sex: Female

DRUGS (7)
  1. LETAIRIS [Suspect]
     Indication: PULMONARY ARTERIAL HYPERTENSION
     Route: 048
     Dates: start: 20090218
  2. LANOXIN [Concomitant]
  3. REVATIO [Concomitant]
  4. ADVAIR HFA [Concomitant]
  5. LASIX [Concomitant]
  6. PREDNISONE [Concomitant]
  7. FOLIC ACID [Concomitant]

REACTIONS (1)
  - CHEST PAIN [None]
